FAERS Safety Report 4462867-0 (Version None)
Quarter: 2004Q3

REPORT INFORMATION
  Report Type: 
  Country: None (occurrence: None)
  Receive Date: 20040927
  Receipt Date: 20040913
  Transmission Date: 20050211
  Serious: Yes (Death, Hospitalization, Other)
  Sender: FDA-Public Use
  Company Number: 2004066222

PATIENT
  Age: 43 Year
  Sex: Male

DRUGS (5)
  1. DIFLUCAN [Suspect]
     Indication: PHARYNGEAL CANDIDIASIS
     Dosage: 150 MG (1 D), ORAL
     Route: 048
     Dates: start: 20040812, end: 20040819
  2. BACTRIM [Suspect]
     Indication: PNEUMOCYSTIS CARINII PNEUMONIA
     Dosage: 4000 MG (1 D), ORAL
     Route: 048
     Dates: start: 20040815, end: 20040819
  3. LEVOFLOXACIN [Suspect]
     Indication: PNEUMONIA
     Dosage: 500 MG (1 D), ORAL
     Route: 048
     Dates: start: 20040811, end: 20040818
  4. CLOMETHIAZOLE EDISILATE (CLOMETHIAZOLE EDISILATE) [Concomitant]
  5. METOCLOPRAMIDE [Concomitant]

REACTIONS (6)
  - CORONARY ARTERY DISEASE [None]
  - GENERAL PHYSICAL HEALTH DETERIORATION [None]
  - HEPATIC NECROSIS [None]
  - HEPATITIS FULMINANT [None]
  - HYPOXIA [None]
  - PNEUMONIA [None]
